FAERS Safety Report 10400244 (Version 1)
Quarter: 2014Q3

REPORT INFORMATION
  Report Type: Spontaneous
  Country: JP (occurrence: JP)
  Receive Date: 20140821
  Receipt Date: 20140821
  Transmission Date: 20150326
  Serious: Yes (Hospitalization)
  Sender: FDA-Public Use
  Company Number: JP-ROXANE LABORATORIES, INC.-2014-BI-38397GD

PATIENT
  Age: 58 Year
  Sex: Female

DRUGS (4)
  1. ROPINIROLE. [Suspect]
     Active Substance: ROPINIROLE
     Indication: PARKINSON^S DISEASE
     Dosage: 8 MG
     Route: 048
     Dates: start: 201311, end: 201404
  2. LEVODOPA BENSERAZIDE [Suspect]
     Active Substance: BENSERAZIDE\LEVODOPA
     Indication: PARKINSON^S DISEASE
     Dosage: 600 MG
     Route: 048
     Dates: start: 200905
  3. AMANTADINE [Suspect]
     Active Substance: AMANTADINE
     Indication: PARKINSON^S DISEASE
     Dosage: 150 MG
     Route: 048
  4. SELEGILINE [Suspect]
     Active Substance: SELEGILINE
     Indication: PARKINSON^S DISEASE
     Dosage: 2.5 MG
     Route: 048

REACTIONS (1)
  - Dropped head syndrome [Unknown]

NARRATIVE: CASE EVENT DATE: 2014
